FAERS Safety Report 21804310 (Version 2)
Quarter: 2023Q1

REPORT INFORMATION
  Report Type: Report from Study
  Country: US (occurrence: US)
  Receive Date: 20230102
  Receipt Date: 20230302
  Transmission Date: 20230418
  Serious: Yes (Life-Threatening, Hospitalization)
  Sender: FDA-Public Use
  Company Number: US-ARGENX-2022-ARGX-US002851

PATIENT

DRUGS (3)
  1. VYVGART [Suspect]
     Active Substance: EFGARTIGIMOD ALFA-FCAB
     Indication: Myasthenia gravis
     Dosage: 460 MG, 1/WEEK
     Route: 042
     Dates: start: 20221110
  2. VYVGART [Suspect]
     Active Substance: EFGARTIGIMOD ALFA-FCAB
     Dosage: UNK UNK, 1/WEEK X 4
     Route: 042
     Dates: start: 20221213
  3. VYVGART [Suspect]
     Active Substance: EFGARTIGIMOD ALFA-FCAB
     Dosage: UNK UNK, 1/WEEK X 4
     Route: 042
     Dates: start: 20230120

REACTIONS (4)
  - Endotracheal intubation [Unknown]
  - Salivary hypersecretion [Unknown]
  - Dysphagia [Unknown]
  - Therapy non-responder [Unknown]
